FAERS Safety Report 5605460-6 (Version None)
Quarter: 2008Q1

REPORT INFORMATION
  Report Type: 
  Country: None (occurrence: None)
  Receive Date: 20080124
  Receipt Date: 20080108
  Transmission Date: 20080703
  Serious: Yes (Hospitalization, Other)
  Sender: FDA-Public Use
  Company Number: 100#08#2008-00136

PATIENT
  Age: 23 Year
  Sex: Male

DRUGS (3)
  1. CLARITHROMYCIN [Suspect]
     Indication: HELICOBACTER INFECTION
     Dosage: 500 MG TWICE
  2. OMEPRAZOLE [Suspect]
     Indication: HELICOBACTER INFECTION
     Dosage: 20 MG TWICE DAILY
  3. METRONIDAZOLE [Suspect]
     Indication: HELICOBACTER INFECTION
     Dosage: 500 MG TWICE DAILY

REACTIONS (7)
  - CHEST PAIN [None]
  - DYSPEPSIA [None]
  - HEART RATE INCREASED [None]
  - HICCUPS [None]
  - NAUSEA [None]
  - PNEUMOMEDIASTINUM [None]
  - RESPIRATORY RATE INCREASED [None]
